FAERS Safety Report 7915717-1 (Version None)
Quarter: 2011Q4

REPORT INFORMATION
  Report Type: 
  Country: None (occurrence: None)
  Receive Date: 20111115
  Receipt Date: 20111102
  Transmission Date: 20120403
  Serious: Yes (Other)
  Sender: FDA-Public Use
  Company Number: JP-GLAXOSMITHKLINE-B0761047A

PATIENT
  Age: 48 Year
  Sex: Female

DRUGS (18)
  1. LAMICTAL [Suspect]
     Indication: PRODUCT USED FOR UNKNOWN INDICATION
     Dosage: 100MG PER DAY
     Route: 048
     Dates: start: 20110901, end: 20111001
  2. COLONEL [Concomitant]
     Route: 048
  3. LODOPIN [Concomitant]
     Route: 048
  4. BETAMETHASONE [Concomitant]
  5. TALION [Concomitant]
     Route: 048
  6. LIDOMEX [Concomitant]
     Route: 061
  7. BEZATOL SR [Concomitant]
     Route: 048
  8. SILECE [Concomitant]
  9. DEPAS [Concomitant]
     Route: 048
  10. FAMOTIDINE [Concomitant]
     Route: 048
  11. CLOBETASOL PROPIONATE [Concomitant]
     Route: 061
  12. CEFAZOLIN SODIUM [Concomitant]
     Route: 048
  13. GASMOTIN [Concomitant]
     Route: 048
  14. AMOBAN [Concomitant]
     Route: 048
  15. PROMETHAZINE HCL [Concomitant]
     Route: 048
  16. DILTIAZEM HCL [Concomitant]
  17. LITHIUM CARBONATE [Concomitant]
     Route: 048
  18. LANSOPRAZOLE [Concomitant]

REACTIONS (1)
  - LICHEN PLANUS [None]
